FAERS Safety Report 14007477 (Version 1)
Quarter: 2017Q3

REPORT INFORMATION
  Report Type: Spontaneous
  Country: US (occurrence: None)
  Receive Date: 20170924
  Receipt Date: 20170924
  Transmission Date: 20171128
  Serious: No
  Sender: FDA-Public Use
  Company Number: None

PATIENT
  Age: 60 Year
  Sex: Female

DRUGS (1)
  1. ENBREL [Suspect]
     Active Substance: ETANERCEPT

REACTIONS (5)
  - Fall [None]
  - Arthropathy [None]
  - Muscle tightness [None]
  - Burning sensation [None]
  - Fatigue [None]

NARRATIVE: CASE EVENT DATE: 20170922
